FAERS Safety Report 16023403 (Version 1)
Quarter: 2019Q1

REPORT INFORMATION
  Report Type: Spontaneous
  Country: FR (occurrence: FR)
  Receive Date: 20190301
  Receipt Date: 20190301
  Transmission Date: 20190418
  Serious: Yes (Hospitalization)
  Sender: FDA-Public Use
  Company Number: FR-JNJFOC-20190242100

PATIENT
  Age: 82 Year
  Sex: Male

DRUGS (5)
  1. LOPERAMIDE [Concomitant]
     Active Substance: LOPERAMIDE
     Indication: GOUT
     Route: 048
  2. COLCHICINE. [Suspect]
     Active Substance: COLCHICINE
     Indication: GOUT
     Route: 048
     Dates: start: 201406
  3. TRAMADOL HYDROCHLORIDE. [Suspect]
     Active Substance: TRAMADOL HYDROCHLORIDE
     Indication: GOUT
     Route: 048
     Dates: start: 201406
  4. SMECTA [Concomitant]
     Active Substance: MONTMORILLONITE
     Indication: GOUT
     Route: 048
     Dates: start: 201406
  5. SMECTA [Concomitant]
     Active Substance: MONTMORILLONITE
     Indication: GOUT
     Route: 048
     Dates: start: 201406

REACTIONS (3)
  - Dehydration [Unknown]
  - Diarrhoea [Unknown]
  - General physical health deterioration [Unknown]

NARRATIVE: CASE EVENT DATE: 201406
